FAERS Safety Report 5284296-2 (Version None)
Quarter: 2007Q1

REPORT INFORMATION
  Report Type: 
  Country: None (occurrence: None)
  Receive Date: 20061227
  Receipt Date: 20060915
  Transmission Date: 20070707
  Serious: Yes (Other)
  Sender: FDA-Public Use
  Company Number: A03200605758

PATIENT
  Age: 35 Year
  Sex: Female

DRUGS (1)
  1. AMBIEN [Suspect]
     Indication: INSOMNIA
     Dosage: 12.5 MG QD - ORAL
     Route: 048
     Dates: end: 20060101

REACTIONS (2)
  - CONFUSIONAL STATE [None]
  - SLEEP WALKING [None]
